FAERS Safety Report 15462260 (Version 1)
Quarter: 2018Q4

REPORT INFORMATION
  Report Type: Report from Study
  Country: None (occurrence: CA)
  Receive Date: 20181003
  Receipt Date: 20181003
  Transmission Date: 20190204
  Serious: Yes (Hospitalization, Other)
  Sender: FDA-Public Use
  Company Number: CA-ABBVIE-18S-028-2502598-00

PATIENT
  Sex: Male
  Weight: 69.46 kg

DRUGS (15)
  1. LANTUS [Concomitant]
     Active Substance: INSULIN GLARGINE
     Indication: DIABETES MELLITUS
     Dosage: 18 TO 22 UNITS
     Route: 058
     Dates: end: 201808
  2. VITAMIN B12 [Concomitant]
     Active Substance: CYANOCOBALAMIN
     Indication: PRODUCT USED FOR UNKNOWN INDICATION
  3. QUETIAPINE. [Concomitant]
     Active Substance: QUETIAPINE
     Indication: PRODUCT USED FOR UNKNOWN INDICATION
  4. TYLENOL [Concomitant]
     Active Substance: ACETAMINOPHEN
     Indication: PRODUCT USED FOR UNKNOWN INDICATION
     Dosage: UNIT DOSE: 325 TO 650MG?TWICE DAILY IF NEEDED
  5. SPIRONOLACTONE. [Concomitant]
     Active Substance: SPIRONOLACTONE
     Indication: PRODUCT USED FOR UNKNOWN INDICATION
     Dates: end: 201808
  6. PANTOLOC [Concomitant]
     Active Substance: PANTOPRAZOLE SODIUM
     Indication: PRODUCT USED FOR UNKNOWN INDICATION
  7. MELATONIN [Concomitant]
     Active Substance: MELATONIN
     Indication: PRODUCT USED FOR UNKNOWN INDICATION
     Dosage: AT BEDTIME IF NEEDED
     Route: 048
  8. LUPRON DEPOT [Suspect]
     Active Substance: LEUPROLIDE ACETATE
     Indication: PROSTATE CANCER
     Route: 058
     Dates: start: 201611, end: 201702
  9. METOLAZONE. [Concomitant]
     Active Substance: METOLAZONE
     Indication: PRODUCT USED FOR UNKNOWN INDICATION
  10. ELIQUIS [Concomitant]
     Active Substance: APIXABAN
     Indication: ATRIAL FIBRILLATION
  11. FERROUS FUMARATE [Concomitant]
     Active Substance: FERROUS FUMARATE
     Indication: PRODUCT USED FOR UNKNOWN INDICATION
  12. SENOKOT [Concomitant]
     Active Substance: SENNOSIDES
     Indication: PRODUCT USED FOR UNKNOWN INDICATION
     Dosage: AT BEDTIME IF NEEDED
  13. FUROSEMIDE. [Concomitant]
     Active Substance: FUROSEMIDE
     Indication: PRODUCT USED FOR UNKNOWN INDICATION
     Dosage: MORNING; TO MINIMIZE NIGHTTIME VOIDING
  14. LANTUS [Concomitant]
     Active Substance: INSULIN GLARGINE
     Route: 058
     Dates: start: 201808
  15. SPIRONOLACTONE. [Concomitant]
     Active Substance: SPIRONOLACTONE
     Dates: start: 201808

REACTIONS (24)
  - Pulmonary oedema [Unknown]
  - Sudden onset of sleep [Unknown]
  - Rib fracture [Unknown]
  - Sudden onset of sleep [Unknown]
  - Fibrosis [Unknown]
  - Fall [Unknown]
  - Restlessness [Unknown]
  - Injury [Unknown]
  - Fall [Unknown]
  - Bone density decreased [Unknown]
  - Osteoarthritis [Unknown]
  - Irregular sleep wake rhythm disorder [Unknown]
  - Cardiomegaly [Unknown]
  - Off label use [Unknown]
  - Spinal osteoarthritis [Unknown]
  - Somnolence [Unknown]
  - Fall [Unknown]
  - Head injury [Unknown]
  - Light chain disease [Unknown]
  - Fall [Unknown]
  - Pelvic fracture [Recovered/Resolved]
  - Groin pain [Unknown]
  - Faecaloma [Unknown]
  - Physical deconditioning [Unknown]

NARRATIVE: CASE EVENT DATE: 201808
